FAERS Safety Report 7481859-0 (Version None)
Quarter: 2011Q2

REPORT INFORMATION
  Report Type: 
  Country: None (occurrence: None)
  Receive Date: 20110516
  Receipt Date: 20110506
  Transmission Date: 20111010
  Serious: Yes (Hospitalization)
  Sender: FDA-Public Use
  Company Number: IT-MPIJNJ-2011-01738

PATIENT

DRUGS (12)
  1. ACYCLOVIR [Concomitant]
     Indication: PROPHYLAXIS
     Dosage: 400 MG, UNK
     Route: 048
     Dates: start: 20110411, end: 20110421
  2. ENALAPRIL [Concomitant]
     Indication: HYPERTENSION
     Dosage: 5 MG, UNK
     Route: 048
  3. VELCADE [Suspect]
     Indication: MULTIPLE MYELOMA
     Dosage: 2 MG, UNK
     Route: 042
     Dates: start: 20110411, end: 20110422
  4. MIDODRINE HYDROCHLORIDE [Concomitant]
     Indication: HYPERTENSION
     Dosage: 2.5 MG, UNK
     Route: 048
     Dates: start: 20110418
  5. OMEPRAZOLE [Concomitant]
     Indication: PROPHYLAXIS
     Dosage: 20 MG, UNK
     Route: 048
     Dates: start: 20110411
  6. PYRIDOXINE [Concomitant]
     Indication: PROPHYLAXIS
     Dosage: 50 MG, UNK
     Route: 048
     Dates: start: 20110411
  7. CANRENOIC ACID [Concomitant]
     Indication: FLUID RETENTION
     Dosage: 25 MG, UNK
     Route: 048
  8. DEXAMETHASONE [Suspect]
     Indication: MULTIPLE MYELOMA
     Dosage: 40 MG, UNK
     Route: 048
     Dates: start: 20110411, end: 20110415
  9. MELPHALAN HYDROCHLORIDE [Suspect]
     Indication: MULTIPLE MYELOMA
     Dosage: 12 MG, UNK
     Route: 048
     Dates: start: 20110411, end: 20110415
  10. CIPROFLOXACIN [Concomitant]
     Indication: PROPHYLAXIS
     Dosage: 250 MG, UNK
     Route: 048
     Dates: start: 20110411, end: 20110421
  11. BISOPROLOL FUMARATE [Concomitant]
     Indication: CARDIAC FAILURE CONGESTIVE
     Dosage: 2.5 MG, UNK
     Route: 048
  12. FUROSEMIDE [Concomitant]
     Indication: FLUID RETENTION
     Dosage: 25 MG, UNK
     Route: 048

REACTIONS (2)
  - ABDOMINAL PAIN UPPER [None]
  - CHEST PAIN [None]
